FAERS Safety Report 6162231-2 (Version None)
Quarter: 2009Q2

REPORT INFORMATION
  Report Type: 
  Country: None (occurrence: None)
  Receive Date: 20090421
  Receipt Date: 20090410
  Transmission Date: 20091009
  Serious: Yes (Other)
  Sender: FDA-Public Use
  Company Number: US-JNJFOC-20061006138

PATIENT
  Sex: Male
  Weight: 116.12 kg

DRUGS (8)
  1. RISPERDAL [Suspect]
     Indication: BORDERLINE PERSONALITY DISORDER
  2. RISPERDAL [Suspect]
     Indication: SCHIZOAFFECTIVE DISORDER
  3. EFFEXOR [Concomitant]
  4. TOPROL-XL [Concomitant]
  5. CLONIDINE [Concomitant]
  6. REMERON [Concomitant]
  7. ZYPREXA [Concomitant]
     Indication: BORDERLINE PERSONALITY DISORDER
  8. ZYPREXA [Concomitant]
     Indication: SCHIZOAFFECTIVE DISORDER

REACTIONS (3)
  - DIABETES MELLITUS [None]
  - TARDIVE DYSKINESIA [None]
  - WEIGHT INCREASED [None]
